FAERS Safety Report 7443421-5 (Version None)
Quarter: 2011Q2

REPORT INFORMATION
  Report Type: 
  Country: None (occurrence: None)
  Receive Date: 20110428
  Receipt Date: 20110422
  Transmission Date: 20111010
  Serious: Yes (Life-Threatening, Hospitalization)
  Sender: FDA-Public Use
  Company Number: FR-EISAI INC-E3810-04646-SPO-FR

PATIENT
  Sex: Female

DRUGS (6)
  1. PARIET (RABEPRAZOLE) [Suspect]
     Indication: GASTRIC ULCER
     Dosage: UNKNOWN
     Route: 048
  2. BIPRETERAX [Suspect]
     Dosage: UNKNOWN
     Route: 048
  3. ALDACTAZINE [Suspect]
     Indication: HYPERTENSION
     Dosage: UNKNOWN
     Route: 048
  4. MEDIATENSYL [Concomitant]
  5. ACTOPLUS MET [Concomitant]
  6. KARDEGIC [Concomitant]

REACTIONS (2)
  - HYPONATRAEMIA [None]
  - CONVULSION [None]
